FAERS Safety Report 4587259-5 (Version None)
Quarter: 2005Q1

REPORT INFORMATION
  Report Type: 
  Country: None (occurrence: None)
  Receive Date: 20050218
  Receipt Date: 20050208
  Transmission Date: 20050727
  Serious: Yes (Life-Threatening, Hospitalization)
  Sender: FDA-Public Use
  Company Number: ES-GLAXOSMITHKLINE-B0371746A

PATIENT
  Age: 48 Year
  Sex: Female

DRUGS (3)
  1. CLAMOXYL [Suspect]
     Indication: RESPIRATORY TRACT INFECTION
     Dosage: 150MG PER DAY
     Route: 048
     Dates: start: 20041209, end: 20041213
  2. DEXTROMETHORPHAN HYDROBROMIDE [Suspect]
     Indication: COUGH
     Dosage: 15MG PER DAY
     Route: 048
     Dates: start: 20041213, end: 20041213
  3. EBASTINE [Concomitant]
     Indication: ALVEOLITIS ALLERGIC
     Dosage: 10MG PER DAY
     Route: 048
     Dates: start: 20041209, end: 20041213

REACTIONS (3)
  - ANAPHYLACTIC SHOCK [None]
  - CARDIO-RESPIRATORY ARREST [None]
  - COMA [None]
